FAERS Safety Report 25592305 (Version 1)
Quarter: 2025Q3

REPORT INFORMATION
  Report Type: Report from Study
  Country: US (occurrence: US)
  Receive Date: 20250722
  Receipt Date: 20250722
  Transmission Date: 20251021
  Serious: Yes (Hospitalization, Other)
  Sender: TAKEDA
  Company Number: US-TAKEDA-2021TUS001351

PATIENT
  Sex: Male
  Weight: 77 kg

DRUGS (16)
  1. TEDUGLUTIDE [Suspect]
     Active Substance: TEDUGLUTIDE
     Indication: Short-bowel syndrome
     Dosage: UNK UNK, QD
  2. TEDUGLUTIDE [Suspect]
     Active Substance: TEDUGLUTIDE
     Indication: Crohn^s disease
     Dosage: 0.4 MILLILITER, QD
  3. TEDUGLUTIDE [Suspect]
     Active Substance: TEDUGLUTIDE
     Indication: Renal transplant
     Dosage: 0.4 MILLILITER, QD
     Dates: start: 20210303
  4. TEDUGLUTIDE [Suspect]
     Active Substance: TEDUGLUTIDE
     Dosage: 3 MILLIGRAM, QD
  5. TEDUGLUTIDE [Suspect]
     Active Substance: TEDUGLUTIDE
     Dosage: UNK UNK, QD
  6. REMICADE [Concomitant]
     Active Substance: INFLIXIMAB
  7. MINERALS\VITAMINS [Concomitant]
     Active Substance: MINERALS\VITAMINS
  8. PREDNISONE [Concomitant]
     Active Substance: PREDNISONE
  9. CALCIUM CARBONATE [Concomitant]
     Active Substance: CALCIUM CARBONATE
  10. AMLODIPINE BESYLATE [Concomitant]
     Active Substance: AMLODIPINE BESYLATE
  11. IMURAN [Concomitant]
     Active Substance: AZATHIOPRINE
  12. TACROLIMUS [Concomitant]
     Active Substance: TACROLIMUS
  13. ENTYVIO [Concomitant]
     Active Substance: VEDOLIZUMAB
  14. ELIQUIS [Concomitant]
     Active Substance: APIXABAN
  15. METOPROLOL [Concomitant]
     Active Substance: METOPROLOL
  16. ACYCLOVIR [Concomitant]
     Active Substance: ACYCLOVIR

REACTIONS (5)
  - Renal impairment [Unknown]
  - Urinary tract infection [Unknown]
  - Product dose omission issue [Not Recovered/Not Resolved]
  - Insurance issue [Unknown]
  - Product availability issue [Unknown]
